FAERS Safety Report 17253389 (Version 4)
Quarter: 2020Q1

REPORT INFORMATION
  Report Type: Report from Study
  Country: DE (occurrence: DE)
  Receive Date: 20200109
  Receipt Date: 20200331
  Transmission Date: 20200409
  Serious: Yes (Life-Threatening, Hospitalization)
  Sender: FDA-Public Use
  Company Number: DE-MYLANLABS-2020M1001910

PATIENT
  Age: 85 Year
  Sex: Male
  Weight: 85 kg

DRUGS (6)
  1. PANTOPRAZOLE [Suspect]
     Active Substance: PANTOPRAZOLE
     Indication: REFLUX GASTRITIS
     Dosage: 40 MILLIGRAM
     Route: 048
  2. OMEPRAZOLE. [Suspect]
     Active Substance: OMEPRAZOLE
     Indication: REFLUX GASTRITIS
     Dosage: UNK
     Route: 048
  3. AMLODIPINE BESILATE [Concomitant]
     Active Substance: AMLODIPINE BESYLATE
     Indication: PRODUCT USED FOR UNKNOWN INDICATION
     Dosage: 1, UNK, QD/40/5/12.5/ ONCE DAILY
     Route: 048
     Dates: start: 2009
  4. VOCADO HCT [Suspect]
     Active Substance: AMLODIPINE BESYLATE\HYDROCHLOROTHIAZIDE\OLMESARTAN MEDOXOMIL
     Indication: HYPERTENSION
     Dosage: 40/5/12.5 / ONCE DAILY
     Route: 048
     Dates: start: 2009
  5. AMLODIPINE BESILATE W/HYDROCHLOROTHIAZIDE [Concomitant]
     Indication: PRODUCT USED FOR UNKNOWN INDICATION
     Dosage: 40/5/12.5/ ONCE DAILY
     Route: 048
     Dates: start: 2009
  6. KYNTHEUM [Suspect]
     Active Substance: BRODALUMAB
     Indication: PSORIASIS
     Dosage: UNK
     Route: 058
     Dates: start: 20190417

REACTIONS (10)
  - Peripheral venous disease [Not Recovered/Not Resolved]
  - Erysipelas [Not Recovered/Not Resolved]
  - Hypersensitivity vasculitis [Not Recovered/Not Resolved]
  - C-reactive protein increased [Not Recovered/Not Resolved]
  - Skin ulcer [Not Recovered/Not Resolved]
  - Localised infection [Not Recovered/Not Resolved]
  - Peripheral arterial occlusive disease [Not Recovered/Not Resolved]
  - Dermatitis infected [Not Recovered/Not Resolved]
  - Tinea pedis [Unknown]
  - Sepsis [Unknown]

NARRATIVE: CASE EVENT DATE: 20190708
